FAERS Safety Report 24853341 (Version 2)
Quarter: 2025Q3

REPORT INFORMATION
  Report Type: Spontaneous
  Country: US (occurrence: US)
  Receive Date: 20250117
  Receipt Date: 20250816
  Transmission Date: 20251021
  Serious: No
  Sender: ALEXION PHARMACEUTICALS
  Company Number: US-AstraZeneca-CH-00785928A

PATIENT
  Age: 52 Year
  Sex: Female

DRUGS (7)
  1. TEZSPIRE [Suspect]
     Active Substance: TEZEPELUMAB-EKKO
     Route: 065
  2. TEZSPIRE [Suspect]
     Active Substance: TEZEPELUMAB-EKKO
  3. CELEBREX [Concomitant]
     Active Substance: CELECOXIB
     Route: 065
  4. GABAPENTIN [Concomitant]
     Active Substance: GABAPENTIN
     Route: 065
  5. HYDROCODONE [Concomitant]
     Active Substance: HYDROCODONE
     Route: 065
  6. MEDROL [Concomitant]
     Active Substance: METHYLPREDNISOLONE
     Route: 065
  7. PREDNISONE [Concomitant]
     Active Substance: PREDNISONE
     Route: 065

REACTIONS (4)
  - Adverse drug reaction [Unknown]
  - Pain [Unknown]
  - Chest pain [Unknown]
  - Fatigue [Unknown]
